FAERS Safety Report 11176458 (Version 2)
Quarter: 2015Q4

REPORT INFORMATION
  Report Type: Spontaneous
  Country: US (occurrence: US)
  Receive Date: 20150610
  Receipt Date: 20151014
  Transmission Date: 20160304
  Serious: No
  Sender: FDA-Public Use
  Company Number: US-ASTRAZENECA-2015SE53616

PATIENT
  Age: 62 Year
  Sex: Female
  Weight: 108.9 kg

DRUGS (15)
  1. SEROQUEL [Suspect]
     Active Substance: QUETIAPINE FUMARATE
     Indication: PRODUCT USED FOR UNKNOWN INDICATION
     Route: 048
  2. OMEGA 3 6 AND 9 [Concomitant]
  3. VITAMIN E [Concomitant]
     Active Substance: .ALPHA.-TOCOPHEROL
  4. CRESTOR [Suspect]
     Active Substance: ROSUVASTATIN CALCIUM
     Route: 048
  5. LISINOPRIL-HCTZ [Suspect]
     Active Substance: HYDROCHLOROTHIAZIDE\LISINOPRIL
     Route: 048
  6. LOMITAPIDE [Suspect]
     Active Substance: LOMITAPIDE MESYLATE
     Indication: TYPE IIA HYPERLIPIDAEMIA
     Route: 048
     Dates: start: 20140217
  7. ASPIRIN. [Concomitant]
     Active Substance: ASPIRIN
  8. LANTUS [Concomitant]
     Active Substance: INSULIN GLARGINE
  9. CARVEDILOL. [Concomitant]
     Active Substance: CARVEDILOL
  10. FENOFIBRATE. [Concomitant]
     Active Substance: FENOFIBRATE
  11. INSULIN 730 [Concomitant]
  12. SEROQUEL [Suspect]
     Active Substance: QUETIAPINE FUMARATE
     Indication: PRODUCT USED FOR UNKNOWN INDICATION
     Route: 048
  13. VITAMIN D [Concomitant]
     Active Substance: CHOLECALCIFEROL
  14. LEVOTHYROXINE. [Concomitant]
     Active Substance: LEVOTHYROXINE
  15. CQ10 [Concomitant]
     Active Substance: UBIDECARENONE

REACTIONS (4)
  - Hypercholesterolaemia [Unknown]
  - Headache [Unknown]
  - Faeces soft [Recovering/Resolving]
  - Diarrhoea [Recovering/Resolving]

NARRATIVE: CASE EVENT DATE: 201402
